FAERS Safety Report 7032301-5 (Version None)
Quarter: 2010Q4

REPORT INFORMATION
  Report Type: 
  Country: None (occurrence: None)
  Receive Date: 20101007
  Receipt Date: 20100526
  Transmission Date: 20110411
  Serious: Yes (Hospitalization)
  Sender: FDA-Public Use
  Company Number: FR-BRISTOL-MYERS SQUIBB COMPANY-15124274

PATIENT
  Age: 67 Year

DRUGS (4)
  1. CETUXIMAB [Suspect]
     Indication: COLON CANCER
     Dosage: STRENGTH=5MG/ML RECENT INFUSION ON 23MAR10
     Route: 042
     Dates: start: 20090928
  2. OXALIPLATIN [Suspect]
     Indication: COLON CANCER
     Route: 042
     Dates: start: 20090928, end: 20100215
  3. FLUOROURACIL [Suspect]
     Indication: COLON CANCER
     Dosage: RECENT INFUSION ON 23MAR10
     Route: 042
     Dates: start: 20090928
  4. FOLINIC ACID [Suspect]
     Indication: COLON CANCER
     Dosage: RECENT INFUSION ON 23MAR10
     Route: 042
     Dates: start: 20090928

REACTIONS (1)
  - DEEP VEIN THROMBOSIS [None]
